FAERS Safety Report 13463302 (Version 1)
Quarter: 2017Q2

REPORT INFORMATION
  Report Type: Spontaneous
  Country: US (occurrence: US)
  Receive Date: 20170420
  Receipt Date: 20170420
  Transmission Date: 20170830
  Serious: No
  Sender: FDA-Public Use
  Company Number: US-GE HEALTHCARE LIFE SCIENCES-2017CSU000706

PATIENT
  Sex: Male
  Weight: 72.56 kg

DRUGS (1)
  1. OMNIPAQUE [Suspect]
     Active Substance: IOHEXOL
     Indication: ABDOMINAL MASS
     Dosage: 100 ML, SINGLE
     Route: 042

REACTIONS (1)
  - Contrast media reaction [Unknown]
